FAERS Safety Report 9741880 (Version 1)
Quarter: 2013Q4

REPORT INFORMATION
  Report Type: Report from Study
  Country: BR (occurrence: BR)
  Receive Date: 20131210
  Receipt Date: 20131210
  Transmission Date: 20140711
  Serious: Yes (Death)
  Sender: FDA-Public Use
  Company Number: PHHY2013BR143762

PATIENT
  Sex: Female
  Weight: 40 kg

DRUGS (9)
  1. ACLASTA [Suspect]
     Indication: OSTEOPOROSIS
     Dosage: 5 MG, OF ONE APPLICATION
     Route: 042
     Dates: start: 2010
  2. ACLASTA [Suspect]
     Dosage: 5 MG, OF ONE APPLICATION
     Route: 042
  3. ACLASTA [Suspect]
     Dosage: 5 MG, OF ONE APPLICATION
     Route: 042
  4. ACLASTA [Suspect]
     Dosage: 5 MG, OF ONE APPLICATION
     Route: 042
     Dates: start: 20130911
  5. SERTRALINE [Concomitant]
     Indication: DEPRESSION
     Dosage: 90 ML, UNK
     Route: 048
     Dates: start: 2008
  6. RIVASTIGMINE [Concomitant]
     Indication: DEMENTIA ALZHEIMER^S TYPE
     Dosage: 2 DF, QD
     Route: 048
     Dates: start: 2009
  7. HEIMER [Concomitant]
     Indication: DEMENTIA ALZHEIMER^S TYPE
     Dosage: 1 DF, QD
     Route: 048
     Dates: start: 2012
  8. PANTOPRAZOLE [Concomitant]
     Indication: ABDOMINAL DISCOMFORT
     Dosage: 1 DF, QD
     Route: 048
     Dates: start: 2009
  9. ALPRAZOLAM [Concomitant]
     Indication: SLEEP DISORDER
     Dosage: 1 DF, UNK
     Route: 048
     Dates: start: 2008

REACTIONS (3)
  - Candida infection [Fatal]
  - Cardiac arrest [Fatal]
  - Malaise [Recovering/Resolving]
